FAERS Safety Report 5364041-2 (Version None)
Quarter: 2007Q2

REPORT INFORMATION
  Report Type: 
  Country: None (occurrence: None)
  Receive Date: 20070530
  Receipt Date: 20070325
  Transmission Date: 20071010
  Serious: No
  Sender: FDA-Public Use
  Company Number: 2006PV024232

PATIENT
  Age: 67 Year
  Sex: Female
  Weight: 99.7913 kg

DRUGS (12)
  1. BYETTA [Suspect]
     Indication: DIABETES MELLITUS NON-INSULIN-DEPENDENT
     Dosage: % + 10 MCG; BID; SC
     Route: 058
     Dates: start: 20060801, end: 20060101
  2. BYETTA [Suspect]
     Indication: DIABETES MELLITUS NON-INSULIN-DEPENDENT
     Dosage: % + 10 MCG; BID; SC
     Route: 058
     Dates: start: 20060701, end: 20060801
  3. BYETTA [Suspect]
     Indication: DIABETES MELLITUS NON-INSULIN-DEPENDENT
     Dosage: % + 10 MCG; BID; SC
     Route: 058
     Dates: start: 20060801, end: 20060901
  4. BYETTA [Suspect]
     Indication: DIABETES MELLITUS NON-INSULIN-DEPENDENT
     Dosage: % + 10 MCG; BID; SC
     Route: 058
     Dates: start: 20060901, end: 20061101
  5. BYETTA [Suspect]
     Indication: DIABETES MELLITUS NON-INSULIN-DEPENDENT
     Dosage: % + 10 MCG; BID; SC
     Route: 058
     Dates: start: 20061001, end: 20070301
  6. BYETTA [Suspect]
     Indication: DIABETES MELLITUS NON-INSULIN-DEPENDENT
     Dosage: % + 10 MCG; BID; SC
     Route: 058
     Dates: start: 20061101
  7. BYETTA [Suspect]
     Indication: DIABETES MELLITUS NON-INSULIN-DEPENDENT
     Dosage: % + 10 MCG; BID; SC
     Route: 058
     Dates: start: 20070301
  8. BYETTA [Suspect]
  9. BYETTA [Suspect]
  10. METFORMIN HCL [Concomitant]
  11. FLIPIZIDE XR [Concomitant]
  12. GLIPIZIDE [Concomitant]

REACTIONS (4)
  - DECREASED APPETITE [None]
  - INJECTION SITE IRRITATION [None]
  - INJECTION SITE URTICARIA [None]
  - WEIGHT DECREASED [None]
